FAERS Safety Report 16111924 (Version 1)
Quarter: 2019Q2

REPORT INFORMATION
  Report Type: Spontaneous
  Country: US (occurrence: US)
  Receive Date: 20190322
  Receipt Date: 20190322
  Transmission Date: 20190711
  Serious: Yes (Death, Hospitalization)
  Sender: FDA-Public Use
  Company Number: None

PATIENT
  Age: 58 Year
  Sex: Male
  Weight: 60.3 kg

DRUGS (2)
  1. CLINIMIX [Suspect]
     Active Substance: ALANINE\ARGININE\DEXTROSE\GLYCINE\HISTIDINE\ISOLEUCINE\LEUCINE\LYSINE\METHIONINE\PHENYLALANINE\PROLINE\SERINE\THREONINE\TRYPTOPHAN\TYROSINE\VALINE
     Indication: GASTROINTESTINAL PERFORATION
     Route: 042
     Dates: start: 20171210, end: 20180108
  2. SMOFLIPID [Suspect]
     Active Substance: FISH OIL\MEDIUM-CHAIN TRIGLYCERIDES\OLIVE OIL\SOYBEAN OIL
     Indication: PARENTERAL NUTRITION
     Dosage: ?          OTHER FREQUENCY:2/3 TIMES PER WEEK;?
     Route: 042
     Dates: start: 20171210, end: 20180108

REACTIONS (11)
  - Multiple organ dysfunction syndrome [None]
  - Sepsis [None]
  - Disseminated intravascular coagulation [None]
  - Pyrexia [None]
  - Gastrointestinal haemorrhage [None]
  - Fatigue [None]
  - Ecchymosis [None]
  - Ocular icterus [None]
  - Tachypnoea [None]
  - Tachycardia [None]
  - Mental disorder [None]

NARRATIVE: CASE EVENT DATE: 20171215
